FAERS Safety Report 21859029 (Version 1)
Quarter: 2023Q1

REPORT INFORMATION
  Report Type: Spontaneous
  Country: DE (occurrence: DE)
  Receive Date: 20230113
  Receipt Date: 20230113
  Transmission Date: 20230417
  Serious: Yes (Hospitalization, Other)
  Sender: FDA-Public Use
  Company Number: DE-CELLTRION INC.-2023DE000225

PATIENT

DRUGS (15)
  1. BEVACIZUMAB [Suspect]
     Active Substance: BEVACIZUMAB
     Indication: Gastric antral vascular ectasia
     Dosage: 7.5 MG/KG, BODY WEIGHT, CYCLIC
  2. BEVACIZUMAB [Suspect]
     Active Substance: BEVACIZUMAB
     Indication: Upper gastrointestinal haemorrhage
     Dosage: UNK, CYCLIC, 9 INFUSIONS
  3. BEVACIZUMAB [Suspect]
     Active Substance: BEVACIZUMAB
     Dosage: 7.5 MG/KG EVERY 3 WEEKS IN NINE SINGLE DOSES OVER SIX MONTHS
  4. OCTREOTIDE ACETATE [Suspect]
     Active Substance: OCTREOTIDE ACETATE
     Indication: Gastric antral vascular ectasia
     Dosage: 200 UG, 3X/DAY
     Route: 058
  5. OCTREOTIDE ACETATE [Suspect]
     Active Substance: OCTREOTIDE ACETATE
     Dosage: 1000 UG, DAILY (400-200-400 UG)
     Route: 058
  6. OCTREOTIDE [Suspect]
     Active Substance: OCTREOTIDE
     Indication: Gastric antral vascular ectasia
     Dosage: TAPERED DOSE
     Route: 042
  7. OCTREOTIDE [Suspect]
     Active Substance: OCTREOTIDE
     Indication: Upper gastrointestinal haemorrhage
     Dosage: 1000 MICROGRAM, QD INCREASED (400 - 200 - 400 UG) THEN REDUCED THE DOSE IN SMALL INCREMENTS
     Route: 058
  8. OCTREOTIDE [Suspect]
     Active Substance: OCTREOTIDE
     Dosage: 200 MICROGRAM EVERY 8 HOURS
     Route: 058
  9. OCTREOTIDE [Suspect]
     Active Substance: OCTREOTIDE
     Dosage: 1200 MICROGRAM EVERY 1 DAY, HIGH-DOSE
     Route: 042
  10. ETHINYLESTRADIOL;NORETHISTERONE [Concomitant]
     Indication: Upper gastrointestinal haemorrhage
     Dosage: 0.02 MG/0.5 MG/DAY
  11. ETHINYLESTRADIOL;NORETHISTERONE [Concomitant]
     Indication: Gastric antral vascular ectasia
  12. EPINEPHRINE [Concomitant]
     Active Substance: EPINEPHRINE
     Indication: Gastric antral vascular ectasia
     Dosage: UNKNOWN
  13. EPINEPHRINE [Concomitant]
     Active Substance: EPINEPHRINE
     Indication: Upper gastrointestinal haemorrhage
  14. HEMOSPRAY [Concomitant]
     Indication: Gastric antral vascular ectasia
     Dosage: UNKNOWN
  15. HEMOSPRAY [Concomitant]
     Indication: Upper gastrointestinal haemorrhage

REACTIONS (6)
  - Dyspnoea [Unknown]
  - Fatigue [Unknown]
  - Ill-defined disorder [Unknown]
  - Haemoglobin decreased [Recovered/Resolved]
  - Off label use [Unknown]
  - Off label use [Unknown]
